FAERS Safety Report 7061442-1 (Version None)
Quarter: 2010Q4

REPORT INFORMATION
  Report Type: 
  Country: None (occurrence: None)
  Receive Date: 20101026
  Receipt Date: 20101021
  Transmission Date: 20110411
  Serious: Yes (Death, Life-Threatening)
  Sender: FDA-Public Use
  Company Number: JP-BAYER-200913021BYL

PATIENT
  Age: 60 Year
  Sex: Female
  Weight: 50 kg

DRUGS (9)
  1. NEXAVAR [Suspect]
     Indication: HEPATIC NEOPLASM MALIGNANT
     Dosage: TOTAL DAILY DOSE: 400 MG  UNIT DOSE: 200 MG
     Route: 048
     Dates: start: 20090811, end: 20090817
  2. LASIX [Concomitant]
     Route: 048
     Dates: start: 20090512, end: 20090901
  3. ALDACTONE [Concomitant]
     Route: 048
     Dates: start: 20090512, end: 20090901
  4. BETAMETHASONE [Concomitant]
     Route: 048
     Dates: start: 20090714, end: 20090905
  5. ONEALFA [Concomitant]
     Route: 048
     Dates: start: 20090714, end: 20090901
  6. FULCALIQ 1 [Concomitant]
     Route: 041
     Dates: start: 20090805, end: 20090905
  7. OXYCONTIN [Concomitant]
     Indication: PAIN MANAGEMENT
     Route: 048
     Dates: start: 20090824, end: 20090826
  8. DUROTEP [Concomitant]
     Indication: PAIN MANAGEMENT
     Route: 062
     Dates: start: 20090825, end: 20090905
  9. DORMICUM [Concomitant]
     Indication: PAIN
     Route: 042
     Dates: start: 20090904, end: 20090905

REACTIONS (3)
  - HEPATIC ENCEPHALOPATHY [None]
  - JAUNDICE [None]
  - LIVER DISORDER [None]
